FAERS Safety Report 17620923 (Version 1)
Quarter: 2020Q2

REPORT INFORMATION
  Report Type: Spontaneous
  Country: US (occurrence: US)
  Receive Date: 20200403
  Receipt Date: 20200403
  Transmission Date: 20200713
  Serious: No
  Sender: FDA-Public Use
  Company Number: US-GLAXOSMITHKLINE-US2020AMR048790

PATIENT

DRUGS (1)
  1. TRELEGY ELLIPTA [Suspect]
     Active Substance: FLUTICASONE FUROATE\UMECLIDINIUM BROMIDE\VILANTEROL TRIFENATATE
     Indication: ASTHMA
     Dosage: UNK
     Route: 065

REACTIONS (6)
  - Swelling face [Unknown]
  - Viral infection [Unknown]
  - Product use in unapproved indication [Unknown]
  - Wheezing [Unknown]
  - Inappropriate schedule of product administration [Unknown]
  - Chest discomfort [Unknown]
